FAERS Safety Report 6441175-2 (Version None)
Quarter: 2009Q4

REPORT INFORMATION
  Report Type: 
  Country: None (occurrence: None)
  Receive Date: 20091113
  Receipt Date: 20091113
  Transmission Date: 20100525
  Serious: Yes (Hospitalization)
  Sender: FDA-Public Use
  Company Number: None

PATIENT
  Age: 26 Year
  Sex: Female
  Weight: 68.0396 kg

DRUGS (1)
  1. MIRENA [Suspect]
     Indication: CONTRACEPTION
     Dosage: 1 IUD UP TO 5 YEARS INTRA-UTERINE
     Route: 015
     Dates: start: 20090311

REACTIONS (3)
  - COMPLICATION OF DEVICE INSERTION [None]
  - DRUG INEFFECTIVE [None]
  - RASH MACULAR [None]
